FAERS Safety Report 5051411-5 (Version None)
Quarter: 2006Q3

REPORT INFORMATION
  Report Type: 
  Country: None (occurrence: None)
  Receive Date: 20060714
  Receipt Date: 20040115
  Transmission Date: 20061208
  Serious: Yes (Life-Threatening, Hospitalization, Disabling)
  Sender: FDA-Public Use
  Company Number: US-ROCHE-356278

PATIENT
  Age: 12 Year
  Sex: Female
  Weight: 65.8 kg

DRUGS (1)
  1. ACCUTANE [Suspect]
     Route: 048
     Dates: start: 19961229, end: 19970221

REACTIONS (98)
  - ABDOMINAL DISTENSION [None]
  - ABDOMINAL PAIN [None]
  - ABSCESS [None]
  - AGITATION [None]
  - AGNOSIA [None]
  - ALOPECIA [None]
  - ANAEMIA MEGALOBLASTIC [None]
  - ANAL FISSURE [None]
  - AORTIC VALVE INCOMPETENCE [None]
  - ARTHRITIS BACTERIAL [None]
  - AUTOIMMUNE DISORDER [None]
  - BENIGN INTRACRANIAL HYPERTENSION [None]
  - BLOOD CHOLESTEROL INCREASED [None]
  - BLOOD URIC ACID INCREASED [None]
  - CELLULITIS [None]
  - CEREBELLAR INFARCTION [None]
  - CERVICOBRACHIAL SYNDROME [None]
  - CHROMATURIA [None]
  - CITROBACTER INFECTION [None]
  - COLITIS ULCERATIVE [None]
  - CONFUSIONAL STATE [None]
  - CUSHING'S SYNDROME [None]
  - CUSHINGOID [None]
  - CYST RUPTURE [None]
  - CYSTITIS [None]
  - CYSTITIS HAEMORRHAGIC [None]
  - DEPRESSION [None]
  - DERMAL CYST [None]
  - DERMOID CYST [None]
  - DISEASE RECURRENCE [None]
  - DYSMENORRHOEA [None]
  - DYSPHAGIA [None]
  - DYSTHYMIC DISORDER [None]
  - ELECTROENCEPHALOGRAM ABNORMAL [None]
  - ENCOPRESIS [None]
  - ENDOMETRIOSIS [None]
  - GLUCOSE URINE PRESENT [None]
  - HAEMATURIA [None]
  - HAEMOLYTIC ANAEMIA [None]
  - HALLUCINATION [None]
  - HEADACHE [None]
  - HEPATITIS [None]
  - HERPES SIMPLEX [None]
  - HYPERTENSION [None]
  - HYPOAESTHESIA [None]
  - ILL-DEFINED DISORDER [None]
  - INFLAMMATORY BOWEL DISEASE [None]
  - INTERVERTEBRAL DISC DEGENERATION [None]
  - IRRITABLE BOWEL SYNDROME [None]
  - JOINT SWELLING [None]
  - LIVEDO RETICULARIS [None]
  - LOSS OF CONSCIOUSNESS [None]
  - LUPUS NEPHRITIS [None]
  - MASS [None]
  - MEGACOLON [None]
  - MEMORY IMPAIRMENT [None]
  - MENTAL DISORDER [None]
  - MITRAL VALVE INCOMPETENCE [None]
  - MOUTH ULCERATION [None]
  - MYOPIA [None]
  - NASAL DRYNESS [None]
  - NEPHROPATHY [None]
  - NERVOUS SYSTEM DISORDER [None]
  - NITRITE URINE PRESENT [None]
  - ORTHOPNOEA [None]
  - OSTEOMYELITIS [None]
  - PANCREATITIS [None]
  - PANCYTOPENIA [None]
  - PERICARDIAL EFFUSION [None]
  - PHARYNGOLARYNGEAL PAIN [None]
  - PLATELET COUNT DECREASED [None]
  - POLYP [None]
  - PROTEIN URINE PRESENT [None]
  - PSEUDOMENINGOCELE [None]
  - RECTAL TENESMUS [None]
  - RENAL FAILURE [None]
  - SINUSITIS [None]
  - STAPHYLOCOCCAL INFECTION [None]
  - SYNCOPE [None]
  - SYSTEMIC LUPUS ERYTHEMATOSUS [None]
  - TEMPERATURE INTOLERANCE [None]
  - TENDERNESS [None]
  - THINKING ABNORMAL [None]
  - TRICUSPID VALVE INCOMPETENCE [None]
  - UPPER RESPIRATORY TRACT INFECTION [None]
  - URETHRAL DISORDER [None]
  - URETHRAL POLYP [None]
  - URINARY TRACT INFECTION [None]
  - URINE KETONE BODY PRESENT [None]
  - URINE LEUKOCYTE ESTERASE POSITIVE [None]
  - UROBILIN URINE PRESENT [None]
  - UROGENITAL PROLAPSE [None]
  - VAGINAL HAEMORRHAGE [None]
  - VASCULITIS [None]
  - VIRAL PHARYNGITIS [None]
  - VULVOVAGINAL MYCOTIC INFECTION [None]
  - WEGENER'S GRANULOMATOSIS [None]
  - WHITE BLOOD CELL COUNT DECREASED [None]
